FAERS Safety Report 5939185-4 (Version None)
Quarter: 2008Q4

REPORT INFORMATION
  Report Type: 
  Country: None (occurrence: None)
  Receive Date: 20081103
  Receipt Date: 20081030
  Transmission Date: 20090506
  Serious: Yes (Death, Hospitalization)
  Sender: FDA-Public Use
  Company Number: DE-SANOFI-SYNTHELABO-F01200701298

PATIENT
  Sex: Female

DRUGS (2)
  1. GEMZAR [Suspect]
     Route: 041
     Dates: start: 20070928, end: 20070928
  2. ELOXATIN [Suspect]
     Route: 041
     Dates: start: 20070928, end: 20070928

REACTIONS (3)
  - DISEASE PROGRESSION [None]
  - DYSPNOEA [None]
  - PLEURAL EFFUSION [None]
